FAERS Safety Report 19393320 (Version 1)
Quarter: 2021Q2

REPORT INFORMATION
  Report Type: Spontaneous
  Country: US (occurrence: US)
  Receive Date: 20210609
  Receipt Date: 20210609
  Transmission Date: 20210717
  Serious: No
  Sender: FDA-Public Use
  Company Number: US-SA-2021SA190485

PATIENT
  Age: 52 Year
  Sex: Female

DRUGS (4)
  1. FLUOCINOLONE ACETATE [Concomitant]
     Active Substance: FLUOCINOLONE ACETONIDE
  2. OZEMPIC [Concomitant]
     Active Substance: SEMAGLUTIDE
  3. AMLODIPINE [Concomitant]
     Active Substance: AMLODIPINE BESYLATE
  4. DUPIXENT [Suspect]
     Active Substance: DUPILUMAB
     Indication: DERMATITIS ATOPIC
     Dosage: 300 MG, QOW
     Route: 058
     Dates: start: 20210123

REACTIONS (1)
  - Dermatitis atopic [Not Recovered/Not Resolved]
